FAERS Safety Report 23122240 (Version 1)
Quarter: 2023Q4

REPORT INFORMATION
  Report Type: Spontaneous
  Country: US (occurrence: US)
  Receive Date: 20231030
  Receipt Date: 20231030
  Transmission Date: 20240109
  Serious: No
  Sender: FDA-Public Use
  Company Number: US-SUN PHARMACEUTICAL INDUSTRIES LTD-2023R1-382068

PATIENT
  Sex: Male

DRUGS (3)
  1. XELPROS [Suspect]
     Active Substance: LATANOPROST
     Indication: Glaucoma
     Dosage: UNK, QD(ONCE EVERYDAY AT NIGHT)
     Route: 047
  2. Cosopt Drops [Concomitant]
     Indication: Product used for unknown indication
     Dosage: UNK
     Route: 065
  3. RHOPRESSA [Concomitant]
     Active Substance: NETARSUDIL MESYLATE
     Indication: Product used for unknown indication
     Dosage: UNK
     Route: 065

REACTIONS (1)
  - Wrong product administered [Unknown]
